FAERS Safety Report 25887054 (Version 2)
Quarter: 2025Q4

REPORT INFORMATION
  Report Type: Spontaneous
  Country: CA (occurrence: CA)
  Receive Date: 20251006
  Receipt Date: 20251105
  Transmission Date: 20260117
  Serious: Yes (Other)
  Sender: BAUSCH AND LOMB
  Company Number: CA-BAUSCH-BH-2025-018309

PATIENT
  Age: 60 Year
  Sex: Male

DRUGS (6)
  1. BUDESONIDE [Suspect]
     Active Substance: BUDESONIDE
     Indication: Colitis
     Dosage: 9 MG, EVERY OTHER DAY
     Route: 048
  2. BUDESONIDE [Suspect]
     Active Substance: BUDESONIDE
     Dosage: DAILY FOR EIGHT WEEKS
     Route: 065
     Dates: start: 20250725
  3. PREDNISONE [Suspect]
     Active Substance: PREDNISONE
     Indication: Colitis
     Dosage: 1 TABLET FOR 7 DAYS
     Dates: start: 20250322, end: 20250329
  4. ROSUVASTATIN [Concomitant]
     Active Substance: ROSUVASTATIN
     Indication: Product used for unknown indication
  5. VITAMIN D3 [Concomitant]
     Active Substance: CHOLECALCIFEROL
     Indication: Product used for unknown indication
  6. MESALAMINE [Concomitant]
     Active Substance: MESALAMINE
     Indication: Product used for unknown indication
     Dates: start: 20250725

REACTIONS (4)
  - Palpitations [Recovering/Resolving]
  - Visual acuity reduced [Not Recovered/Not Resolved]
  - Fatigue [Recovering/Resolving]
  - Anxiety [Not Recovered/Not Resolved]

NARRATIVE: CASE EVENT DATE: 20250301
